FAERS Safety Report 7205891-7 (Version None)
Quarter: 2010Q4

REPORT INFORMATION
  Report Type: 
  Country: None (occurrence: None)
  Receive Date: 20101231
  Receipt Date: 20101220
  Transmission Date: 20110411
  Serious: Yes (Hospitalization)
  Sender: FDA-Public Use
  Company Number: US-CELGENEUS-163-20785-10101711

PATIENT
  Sex: Female

DRUGS (3)
  1. THALOMID [Suspect]
     Indication: MULTIPLE MYELOMA
     Route: 048
     Dates: start: 20080611, end: 20100615
  2. DEXAMETHASONE [Concomitant]
     Route: 065
  3. DEXAMETHASONE [Concomitant]
     Route: 065

REACTIONS (4)
  - BURSITIS [None]
  - CELLULITIS [None]
  - DIABETIC KETOACIDOSIS [None]
  - DIABETIC ULCER [None]
